FAERS Safety Report 4472293-6 (Version None)
Quarter: 2004Q4

REPORT INFORMATION
  Report Type: 
  Country: None (occurrence: None)
  Receive Date: 20041007
  Receipt Date: 20040925
  Transmission Date: 20050328
  Serious: Yes (Disabling, Other)
  Sender: FDA-Public Use
  Company Number: 2004062829

PATIENT
  Age: 61 Year
  Sex: Female
  Weight: 68.0396 kg

DRUGS (7)
  1. NEURONTIN [Suspect]
     Indication: MIGRAINE
     Dosage: 1600 MG (800 M G, 2 IN 1 D), ORAL
     Route: 048
     Dates: start: 20020101
  2. TIZANIDINE (TIZANIDINE) [Concomitant]
  3. CARISOPRODOL [Concomitant]
  4. TEMAZEPAM [Concomitant]
  5. METHADONE HCL [Concomitant]
  6. VALDECOXIB [Concomitant]
  7. ALL OTHER THERAPEUTIC PRODUCTS (ALL OTHER THERAPEUTIC PRODUCTS) [Concomitant]

REACTIONS (9)
  - ARACHNOIDITIS [None]
  - BACK PAIN [None]
  - ECONOMIC PROBLEM [None]
  - FRACTURE NONUNION [None]
  - HUMERUS FRACTURE [None]
  - MIGRAINE [None]
  - POST PROCEDURAL COMPLICATION [None]
  - STRESS SYMPTOMS [None]
  - TREATMENT NONCOMPLIANCE [None]
